FAERS Safety Report 4308338-3 (Version None)
Quarter: 2004Q1

REPORT INFORMATION
  Report Type: 
  Country: None (occurrence: None)
  Receive Date: 20040301
  Receipt Date: 20040209
  Transmission Date: 20041129
  Serious: Yes (Other)
  Sender: FDA-Public Use
  Company Number: 200410322JP

PATIENT
  Age: 36 Year
  Sex: Male
  Weight: 87 kg

DRUGS (4)
  1. ALLEGRA [Suspect]
     Indication: SEASONAL ALLERGY
     Route: 048
     Dates: start: 20040121, end: 20040125
  2. VOLTAREN [Concomitant]
     Indication: PYREXIA
     Route: 048
     Dates: start: 20040121, end: 20040124
  3. MUCOSTA [Concomitant]
     Indication: GASTRIC DISORDER
     Route: 048
     Dates: start: 20040121, end: 20040124
  4. MUCOSTA [Concomitant]
     Indication: PROPHYLAXIS
     Route: 048
     Dates: start: 20040121, end: 20040124

REACTIONS (12)
  - ALANINE AMINOTRANSFERASE INCREASED [None]
  - ANOREXIA [None]
  - ASPARTATE AMINOTRANSFERASE INCREASED [None]
  - CARDIAC FAILURE [None]
  - CHOLELITHIASIS [None]
  - HEPATITIS A ANTIBODY POSITIVE [None]
  - HEPATITIS B SURFACE ANTIGEN POSITIVE [None]
  - HEPATITIS C ANTIBODY POSITIVE [None]
  - HYPOTENSION [None]
  - JOINT SPRAIN [None]
  - MALAISE [None]
  - SENSATION OF HEAVINESS [None]
